FAERS Safety Report 20763141 (Version 5)
Quarter: 2023Q1

REPORT INFORMATION
  Report Type: Spontaneous
  Country: US (occurrence: US)
  Receive Date: 20220428
  Receipt Date: 20230321
  Transmission Date: 20230417
  Serious: Yes (Other)
  Sender: FDA-Public Use
  Company Number: US-PFIZER INC-202200574486

PATIENT
  Age: 67 Year
  Sex: Male

DRUGS (3)
  1. XELJANZ XR [Suspect]
     Active Substance: TOFACITINIB CITRATE
     Indication: Rheumatoid arthritis
     Dosage: 11 MG, DAILY
     Route: 048
     Dates: start: 202202
  2. CELEBREX [Concomitant]
     Active Substance: CELECOXIB
     Dosage: UNK
  3. ZYRTEC [Concomitant]
     Active Substance: CETIRIZINE HYDROCHLORIDE
     Dosage: UNK

REACTIONS (16)
  - Suicidal ideation [Recovered/Resolved]
  - Depression [Unknown]
  - Spermatocele [Unknown]
  - Retinal detachment [Not Recovered/Not Resolved]
  - Therapeutic product effect incomplete [Unknown]
  - Product dose omission issue [Unknown]
  - Respiratory tract congestion [Recovered/Resolved]
  - Hyperhidrosis [Unknown]
  - Sleep disorder [Unknown]
  - Abdominal discomfort [Unknown]
  - Nasal congestion [Unknown]
  - Arthralgia [Recovering/Resolving]
  - Bacterial infection [Unknown]
  - Tooth extraction [Unknown]
  - Discouragement [Unknown]
  - Condition aggravated [Unknown]

NARRATIVE: CASE EVENT DATE: 20220101
